FAERS Safety Report 7573612-4 (Version None)
Quarter: 2011Q2

REPORT INFORMATION
  Report Type: 
  Country: None (occurrence: None)
  Receive Date: 20110627
  Receipt Date: 20110616
  Transmission Date: 20111010
  Serious: Yes (Other)
  Sender: FDA-Public Use
  Company Number: BR-ROCHE-731702

PATIENT
  Sex: Female
  Weight: 90 kg

DRUGS (3)
  1. CALCIUM CARBONATE [Concomitant]
  2. TOCILIZUMAB [Suspect]
     Indication: RHEUMATOID ARTHRITIS
     Dosage: FORM: INFUSION, FREQUENCY:EVERY 28 DAYS
     Route: 042
     Dates: start: 20100316
  3. VITAMIN A [Concomitant]

REACTIONS (7)
  - WEIGHT INCREASED [None]
  - BLOOD CHOLESTEROL INCREASED [None]
  - GAIT DISTURBANCE [None]
  - HYPERTENSION [None]
  - DRUG INEFFECTIVE [None]
  - ARTHRALGIA [None]
  - ARTHRITIS [None]
